FAERS Safety Report 10879513 (Version 1)
Quarter: 2015Q1

REPORT INFORMATION
  Report Type: Spontaneous
  Country: US (occurrence: US)
  Receive Date: 20150302
  Receipt Date: 20150302
  Transmission Date: 20150721
  Serious: Yes (Death, Other)
  Sender: FDA-Public Use
  Company Number: US-BAYER-2015-030541

PATIENT

DRUGS (2)
  1. MICROGESTIN [Concomitant]
     Active Substance: ETHINYL ESTRADIOL\NORETHINDRONE ACETATE
     Dosage: UNK
     Route: 064
     Dates: start: 201210
  2. MIRENA [Suspect]
     Active Substance: LEVONORGESTREL
     Dosage: 20 MCG/24HR, CONT
     Route: 064
     Dates: start: 201210

REACTIONS (3)
  - Trisomy 18 [Fatal]
  - Cystic lymphangioma [None]
  - Foetal exposure during pregnancy [None]
